FAERS Safety Report 5505306-0 (Version None)
Quarter: 2007Q4

REPORT INFORMATION
  Report Type: 
  Country: None (occurrence: None)
  Receive Date: 20071102
  Receipt Date: 20071023
  Transmission Date: 20080405
  Serious: Yes (Other)
  Sender: FDA-Public Use
  Company Number: A0691284A

PATIENT
  Sex: Female

DRUGS (3)
  1. ADVAIR DISKUS 100/50 [Suspect]
     Indication: DRUG USE FOR UNKNOWN INDICATION
     Route: 065
     Dates: start: 20020101
  2. FLOVENT [Suspect]
     Indication: DRUG USE FOR UNKNOWN INDICATION
     Route: 065
  3. SEREVENT [Suspect]
     Indication: DRUG USE FOR UNKNOWN INDICATION
     Route: 065

REACTIONS (30)
  - ABDOMINAL DISTENSION [None]
  - AMENORRHOEA [None]
  - AMNESIA [None]
  - ARTHRALGIA [None]
  - BLOOD BLISTER [None]
  - CHEST DISCOMFORT [None]
  - DENTAL CARIES [None]
  - DEPRESSION [None]
  - DRY EYE [None]
  - DYSPNOEA [None]
  - FATIGUE [None]
  - FLATULENCE [None]
  - FORMICATION [None]
  - GINGIVAL DISORDER [None]
  - GINGIVAL PAIN [None]
  - HAIR GROWTH ABNORMAL [None]
  - HYPERHIDROSIS [None]
  - INCONTINENCE [None]
  - JOINT SWELLING [None]
  - LENTIGO [None]
  - MENTAL IMPAIRMENT [None]
  - MOOD SWINGS [None]
  - MUSCULOSKELETAL STIFFNESS [None]
  - OEDEMA PERIPHERAL [None]
  - PAIN IN EXTREMITY [None]
  - PRURITUS [None]
  - PULMONARY FUNCTION TEST DECREASED [None]
  - TINEA PEDIS [None]
  - TOOTHACHE [None]
  - WEIGHT INCREASED [None]
